FAERS Safety Report 8806794 (Version 1)
Quarter: 2012Q4

REPORT INFORMATION
  Report Type: Spontaneous
  Country: CN (occurrence: None)
  Receive Date: 20120919
  Receipt Date: 20120919
  Transmission Date: 20130627
  Serious: Yes (Hospitalization)
  Sender: FDA-Public Use
  Company Number: DSA_59566_2012

PATIENT
  Sex: Female

DRUGS (11)
  1. FLUOROURACIL (FLUOROURACIL) [Suspect]
     Indication: BREAST CANCER
     Dates: start: 20070727, end: 2007
  2. EPIRUBICIN (EPIRUBICIN) (EPIRUBICIN) [Suspect]
     Indication: BREAST CANCER
     Dates: start: 20070727, end: 2007
  3. CYCLOPHOSPHAMIDE [Suspect]
     Indication: BREAST CANCER
     Route: 042
     Dates: start: 20070727, end: 2007
  4. DEXAMETHASONE [Concomitant]
  5. METOCLOPRAMIDE [Concomitant]
  6. THYMOL [Concomitant]
  7. APREPITANT [Concomitant]
  8. FAMOTIDINE [Concomitant]
  9. ONDANSETRON [Concomitant]
  10. BISACODYL [Concomitant]
  11. SENNA [Concomitant]

REACTIONS (1)
  - Febrile neutropenia [None]
